FAERS Safety Report 9855172 (Version 1)
Quarter: 2014Q1

REPORT INFORMATION
  Report Type: Spontaneous
  Country: TW (occurrence: TW)
  Receive Date: 20140130
  Receipt Date: 20140130
  Transmission Date: 20141002
  Serious: Yes (Death)
  Sender: FDA-Public Use
  Company Number: TW-PFIZER INC-2014023164

PATIENT
  Age: 20 Year
  Sex: Male

DRUGS (3)
  1. VORICONAZOLE [Suspect]
     Indication: ASPERGILLUS INFECTION
     Dosage: 200 MG, EVERY 12 H
     Route: 042
  2. CASPOFUNGIN [Suspect]
     Indication: ANTIFUNGAL TREATMENT
     Dosage: 100 MG, DAILY
     Route: 042
  3. CASPOFUNGIN [Suspect]
     Indication: ASPERGILLUS INFECTION

REACTIONS (1)
  - Drug ineffective [Fatal]
